FAERS Safety Report 11152547 (Version 1)
Quarter: 2015Q2

REPORT INFORMATION
  Report Type: Spontaneous
  Country: GB (occurrence: GB)
  Receive Date: 20150601
  Receipt Date: 20150601
  Transmission Date: 20150821
  Serious: Yes (Disabling)
  Sender: FDA-Public Use
  Company Number: GB-WATSON-2015-10648

PATIENT
  Age: 66 Year
  Sex: Male
  Weight: 85 kg

DRUGS (2)
  1. METRONIDAZOLE. [Suspect]
     Active Substance: METRONIDAZOLE
     Indication: TOOTH INFECTION
     Dosage: 1 DF, TID
     Route: 048
     Dates: start: 20150504, end: 20150507
  2. PENICILLIN                         /00000901/ [Concomitant]
     Active Substance: PENICILLIN
     Indication: TOOTH INFECTION
     Dosage: 4 DF, DAILY
     Route: 065
     Dates: start: 20150504

REACTIONS (2)
  - Arthralgia [Recovering/Resolving]
  - Joint swelling [Recovering/Resolving]

NARRATIVE: CASE EVENT DATE: 20150505
